FAERS Safety Report 25461929 (Version 1)
Quarter: 2025Q2

REPORT INFORMATION
  Report Type: Spontaneous
  Country: US (occurrence: None)
  Receive Date: 20250619
  Receipt Date: 20250619
  Transmission Date: 20250717
  Serious: Yes (Life-Threatening)
  Sender: FDA-CTU
  Company Number: None

PATIENT
  Age: 67 Year
  Sex: Female
  Weight: 67.4 kg

DRUGS (3)
  1. CEFTRIAXONE SODIUM [Suspect]
     Active Substance: CEFTRIAXONE SODIUM
     Indication: Cellulitis
     Route: 042
     Dates: start: 20250606, end: 20250606
  2. CEFTRIAXONE SODIUM [Suspect]
     Active Substance: CEFTRIAXONE SODIUM
     Indication: Urinary tract infection
  3. MORPHINE [Suspect]
     Active Substance: MORPHINE

REACTIONS (10)
  - Anaphylactic reaction [None]
  - Hypoglycaemia [None]
  - Hypoxia [None]
  - Pneumonia [None]
  - Pleural effusion [None]
  - Pericardial effusion [None]
  - Respiratory failure [None]
  - Localised infection [None]
  - Radial nerve palsy [None]
  - Urinary tract infection [None]

NARRATIVE: CASE EVENT DATE: 20250606
